FAERS Safety Report 6295229-4 (Version None)
Quarter: 2009Q3

REPORT INFORMATION
  Report Type: 
  Country: None (occurrence: None)
  Receive Date: 20090730
  Receipt Date: 20090721
  Transmission Date: 20100115
  Serious: Yes (Other)
  Sender: FDA-Public Use
  Company Number: 335326

PATIENT
  Age: 51 Year
  Sex: Female

DRUGS (2)
  1. PHENYTOIN [Suspect]
     Indication: EPILEPSY
  2. LYRICA [Suspect]
     Indication: EPILEPSY

REACTIONS (1)
  - HALLUCINATION, VISUAL [None]
